FAERS Safety Report 5246018-0 (Version None)
Quarter: 2007Q1

REPORT INFORMATION
  Report Type: 
  Country: None (occurrence: None)
  Receive Date: 20061201
  Receipt Date: 20060807
  Transmission Date: 20070707
  Serious: No
  Sender: FDA-Public Use
  Company Number: 2006PV018953

PATIENT
  Age: 53 Year
  Sex: Female
  Weight: 88.4514 kg

DRUGS (5)
  1. BYETTA [Suspect]
     Indication: DIABETES MELLITUS NON-INSULIN-DEPENDENT
     Dosage: 5 MCG;BID;SC
     Route: 058
     Dates: start: 20060731
  2. GLUCOTROL [Concomitant]
  3. TOPROL-XL [Concomitant]
  4. ZESTRIL [Concomitant]
  5. PREVACID [Concomitant]

REACTIONS (6)
  - CHEST PAIN [None]
  - DYSPHONIA [None]
  - HEART RATE INCREASED [None]
  - MYALGIA [None]
  - NAUSEA [None]
  - VOMITING [None]
